FAERS Safety Report 8232380-3 (Version None)
Quarter: 2012Q1

REPORT INFORMATION
  Report Type: 
  Country: None (occurrence: None)
  Receive Date: 20120323
  Receipt Date: 20120313
  Transmission Date: 20120608
  Serious: Yes (Death, Hospitalization)
  Sender: FDA-Public Use
  Company Number: FR-VIIV HEALTHCARE LIMITED-B0787876A

PATIENT
  Age: 53 Year
  Sex: Male

DRUGS (5)
  1. VIDEX [Suspect]
     Indication: HIV INFECTION
     Dosage: 250MG PER DAY
     Route: 048
     Dates: start: 20010101, end: 20120131
  2. PANTOPRAZOLE SODIUM [Concomitant]
     Route: 048
  3. ALDACTONE [Concomitant]
     Route: 048
  4. PROPRANOLOL [Concomitant]
     Route: 065
  5. ABACAVIR SULFATE/LAMIVUDINE [Suspect]
     Indication: HIV INFECTION
     Dosage: 1UNIT PER DAY
     Route: 048
     Dates: start: 20090101, end: 20120131

REACTIONS (19)
  - GENERAL PHYSICAL HEALTH DETERIORATION [None]
  - DYSPNOEA [None]
  - HEPATORENAL SYNDROME [None]
  - CARDIAC FAILURE [None]
  - SEPSIS [None]
  - PSYCHOMOTOR RETARDATION [None]
  - CHEST PAIN [None]
  - HEPATOPULMONARY SYNDROME [None]
  - PULMONARY ARTERIAL HYPERTENSION [None]
  - LACTIC ACIDOSIS [None]
  - HYPERVENTILATION [None]
  - ACUTE RESPIRATORY FAILURE [None]
  - CARDIO-RESPIRATORY ARREST [None]
  - ASTHENIA [None]
  - JAUNDICE [None]
  - HEPATIC FAILURE [None]
  - MALNUTRITION [None]
  - FALL [None]
  - MULTI-ORGAN FAILURE [None]
